FAERS Safety Report 14979861 (Version 1)
Quarter: 2018Q2

REPORT INFORMATION
  Report Type: Report from Study
  Country: US (occurrence: US)
  Receive Date: 20180606
  Receipt Date: 20180606
  Transmission Date: 20180711
  Serious: Yes (Other)
  Sender: FDA-Public Use
  Company Number: US-ELI_LILLY_AND_COMPANY-US201806000956

PATIENT
  Age: 34 Year
  Sex: Male
  Weight: 119.73 kg

DRUGS (5)
  1. OLANZAPINE PAMOATE [Suspect]
     Active Substance: OLANZAPINE PAMOATE
     Indication: PRODUCT USED FOR UNKNOWN INDICATION
     Dosage: 300 MG, 2/M
     Route: 030
     Dates: start: 20150528, end: 20180215
  2. OLANZAPINE PAMOATE [Suspect]
     Active Substance: OLANZAPINE PAMOATE
     Dosage: 405 MG, OTHER
     Route: 030
     Dates: start: 20151008, end: 20180118
  3. CLOZAPINE. [Concomitant]
     Active Substance: CLOZAPINE
     Indication: PRODUCT USED FOR UNKNOWN INDICATION
     Dosage: 150 MG, EACH EVENING
     Route: 065
  4. OLANZAPINE PAMOATE [Suspect]
     Active Substance: OLANZAPINE PAMOATE
     Dosage: 405 MG, 2/M
     Route: 030
     Dates: start: 20180315
  5. DEPAKOTE [Concomitant]
     Active Substance: DIVALPROEX SODIUM
     Indication: PRODUCT USED FOR UNKNOWN INDICATION
     Dosage: 250 MG, TID
     Route: 065

REACTIONS (4)
  - Hyperhidrosis [Not Recovered/Not Resolved]
  - Hypotension [Not Recovered/Not Resolved]
  - Post-injection delirium sedation syndrome [Not Recovered/Not Resolved]
  - Sedation [Not Recovered/Not Resolved]

NARRATIVE: CASE EVENT DATE: 20180524
